FAERS Safety Report 5698205-5 (Version None)
Quarter: 2008Q2

REPORT INFORMATION
  Report Type: 
  Country: None (occurrence: None)
  Receive Date: 20080408
  Receipt Date: 20080326
  Transmission Date: 20081010
  Serious: Yes (Other)
  Sender: FDA-Public Use
  Company Number: CN-ELI_LILLY_AND_COMPANY-CN200803005784

PATIENT
  Age: 51 Year
  Sex: Female

DRUGS (1)
  1. PROZAC [Suspect]
     Indication: EMOTIONAL DISORDER
     Dosage: 20 MG, DAILY (1/D)
     Route: 048
     Dates: start: 20060202, end: 20070731

REACTIONS (3)
  - ELECTROCARDIOGRAM ST-T CHANGE [None]
  - LEFT VENTRICULAR FAILURE [None]
  - SINUS ARRHYTHMIA [None]
